FAERS Safety Report 6589087-8 (Version None)
Quarter: 2010Q1

REPORT INFORMATION
  Report Type: 
  Country: None (occurrence: None)
  Receive Date: 20100218
  Receipt Date: 20100209
  Transmission Date: 20100710
  Serious: Yes (Other)
  Sender: FDA-Public Use
  Company Number: GXKR2009GB12830

PATIENT
  Sex: Female

DRUGS (4)
  1. ALENDRONIC ACID (NGX) [Suspect]
     Indication: OSTEOPOROSIS
     Dosage: 70 MG, QW
     Route: 048
  2. NOVOMIX 30 [Concomitant]
     Route: 058
  3. NOVORAPID [Concomitant]
     Route: 065
  4. PREDNISOLONE [Concomitant]
     Dosage: 20 MG, QD
     Route: 048

REACTIONS (1)
  - HYPOGLYCAEMIA [None]
